FAERS Safety Report 16253942 (Version 1)
Quarter: 2019Q2

REPORT INFORMATION
  Report Type: Spontaneous
  Country: US (occurrence: US)
  Receive Date: 20190430
  Receipt Date: 20190430
  Transmission Date: 20190711
  Serious: Yes (Other)
  Sender: FDA-Public Use
  Company Number: US-SHILPA MEDICARE LIMITED-SML-US-2019-00105

PATIENT
  Age: 31 Year
  Sex: Male

DRUGS (3)
  1. CAPECITABINE, UNKNOWN [Suspect]
     Active Substance: CAPECITABINE
     Indication: COLORECTAL CANCER METASTATIC
     Dosage: 1000MG, TWICE DAILY, 2 WEEKS ON/1 WEEK OFF
     Route: 065
  2. BEVACIZUMAB. [Suspect]
     Active Substance: BEVACIZUMAB
     Indication: COLORECTAL CANCER METASTATIC
     Dosage: 7.5 MG/KG DAY 1 EVERY 3 WEEKS.
     Route: 065
  3. OXALIPLATIN. [Suspect]
     Active Substance: OXALIPLATIN
     Indication: COLORECTAL CANCER METASTATIC
     Dosage: 100 MG/M2 DAY 1
     Route: 065

REACTIONS (7)
  - Neurotoxicity [Recovered/Resolved]
  - Cerebellar ataxia [Recovered/Resolved]
  - Cerebellar syndrome [Recovered/Resolved]
  - Fatigue [Recovered/Resolved]
  - Wound [Recovered/Resolved]
  - Nausea [Recovered/Resolved]
  - Headache [Recovered/Resolved]
